FAERS Safety Report 18067247 (Version 1)
Quarter: 2020Q3

REPORT INFORMATION
  Report Type: Spontaneous
  Country: US (occurrence: US)
  Receive Date: 20200724
  Receipt Date: 20200724
  Transmission Date: 20201103
  Serious: Yes (Death, Hospitalization, Other)
  Sender: FDA-Public Use
  Company Number: US-PURDUE-USA-2020-0159253

PATIENT
  Age: 24 Year
  Sex: Female

DRUGS (2)
  1. HEROIN [Suspect]
     Active Substance: DIAMORPHINE
     Indication: PRODUCT USED FOR UNKNOWN INDICATION
     Route: 065
  2. OXYCONTIN [Suspect]
     Active Substance: OXYCODONE HYDROCHLORIDE
     Indication: BACK PAIN
     Route: 048

REACTIONS (9)
  - Respiratory failure [Fatal]
  - Cardiac failure [Fatal]
  - Heart valve replacement [Unknown]
  - Asthenia [Unknown]
  - Cardio-respiratory arrest [Fatal]
  - Staphylococcal infection [Unknown]
  - Drug abuse [Fatal]
  - Drug dependence [Unknown]
  - Renal failure [Fatal]

NARRATIVE: CASE EVENT DATE: 20110416
